FAERS Safety Report 9301894 (Version 2)
Quarter: 2013Q3

REPORT INFORMATION
  Report Type: Spontaneous
  Country: GB (occurrence: GB)
  Receive Date: 20130521
  Receipt Date: 20130701
  Transmission Date: 20140515
  Serious: Yes (Hospitalization)
  Sender: FDA-Public Use
  Company Number: GB-VERTEX PHARMACEUTICALS INC-2013-006256

PATIENT
  Age: 18 Year
  Sex: Female
  Weight: 25 kg

DRUGS (4)
  1. KALYDECO [Suspect]
     Indication: CYSTIC FIBROSIS
     Dosage: 150 MG, BID
     Dates: end: 20130519
  2. KALYDECO [Suspect]
     Dosage: 150 MG, BID
     Dates: start: 2013
  3. CEFTAZIDIME [Concomitant]
     Dosage: 3 G, TID
     Route: 042
     Dates: start: 20130517
  4. TOBRAMYCIN [Concomitant]
     Dosage: 320 MG, QD
     Route: 042
     Dates: start: 20130517, end: 2013

REACTIONS (4)
  - Myositis [Unknown]
  - Drug interaction [Unknown]
  - Weight decreased [Unknown]
  - Drug ineffective [Unknown]
